FAERS Safety Report 19873591 (Version 1)
Quarter: 2021Q3

REPORT INFORMATION
  Report Type: Spontaneous
  Country: US (occurrence: US)
  Receive Date: 20210922
  Receipt Date: 20210922
  Transmission Date: 20211014
  Serious: No
  Sender: FDA-Public Use
  Company Number: US-009507513-2109USA003939

PATIENT
  Age: 58 Year
  Sex: Male

DRUGS (2)
  1. PAZOPANIB [Concomitant]
     Active Substance: PAZOPANIB
     Indication: EWING^S SARCOMA
  2. KEYTRUDA [Suspect]
     Active Substance: PEMBROLIZUMAB
     Indication: EWING^S SARCOMA
     Dosage: 2 MILLIGRAM/KILOGRAM

REACTIONS (1)
  - Product use in unapproved indication [Unknown]
